FAERS Safety Report 18269437 (Version 2)
Quarter: 2020Q4

REPORT INFORMATION
  Report Type: Report from Study
  Country: None (occurrence: US)
  Receive Date: 20200915
  Receipt Date: 20201013
  Transmission Date: 20210113
  Serious: Yes (Other)
  Sender: FDA-Public Use
  Company Number: US-ABBVIE-20K-163-3560678-00

PATIENT
  Age: 78 Year
  Sex: Female
  Weight: 68.1 kg

DRUGS (11)
  1. ATORVASTATIN [Concomitant]
     Active Substance: ATORVASTATIN
     Indication: BLOOD CHOLESTEROL INCREASED
  2. BUDESONIDE. [Concomitant]
     Active Substance: BUDESONIDE
     Indication: COLITIS MICROSCOPIC
  3. HUMIRA [Suspect]
     Active Substance: ADALIMUMAB
     Indication: BEHCET^S SYNDROME
     Route: 058
     Dates: start: 20200712, end: 20200726
  4. HUMIRA [Suspect]
     Active Substance: ADALIMUMAB
     Indication: ARTHRITIS
  5. BABY ASPIRIN [Concomitant]
     Active Substance: ASPIRIN
     Indication: ANTICOAGULANT THERAPY
  6. PRILOSEC [Concomitant]
     Active Substance: OMEPRAZOLE MAGNESIUM
     Indication: GASTRIC DISORDER
  7. LISINOPRIL. [Concomitant]
     Active Substance: LISINOPRIL
     Indication: HYPERTENSION
  8. HUMIRA [Suspect]
     Active Substance: ADALIMUMAB
     Indication: ARTHRITIS
  9. HUMIRA [Suspect]
     Active Substance: ADALIMUMAB
     Indication: BEHCET^S SYNDROME
     Route: 058
     Dates: start: 20200927
  10. ESTRADIOL. [Concomitant]
     Active Substance: ESTRADIOL
     Indication: HORMONE LEVEL ABNORMAL
  11. RANITIDINE. [Concomitant]
     Active Substance: RANITIDINE
     Indication: GASTRIC DISORDER

REACTIONS (3)
  - Product dispensing error [Recovered/Resolved]
  - Dental caries [Recovered/Resolved]
  - Off label use [Not Recovered/Not Resolved]

NARRATIVE: CASE EVENT DATE: 202007
